FAERS Safety Report 21396227 (Version 1)
Quarter: 2022Q3

REPORT INFORMATION
  Report Type: Spontaneous
  Country: DE (occurrence: DE)
  Receive Date: 20220930
  Receipt Date: 20220930
  Transmission Date: 20221027
  Serious: Yes (Other)
  Sender: FDA-Public Use
  Company Number: None

PATIENT
  Age: 31 Year
  Sex: Male
  Weight: 77 kg

DRUGS (2)
  1. LENOGRASTIM [Suspect]
     Active Substance: LENOGRASTIM
     Indication: Haematopoietic stem cell mobilisation
     Dosage: 7.5 ?G/KG BODYWEIGHT
     Dates: start: 20200829, end: 20200902
  2. PROTOPIC [Suspect]
     Active Substance: TACROLIMUS
     Indication: Photosensitivity reaction
     Dosage: OCCASIONALLY

REACTIONS (2)
  - Tachycardia paroxysmal [Recovered/Resolved]
  - Product use in unapproved indication [Unknown]

NARRATIVE: CASE EVENT DATE: 20200901
